APPROVED DRUG PRODUCT: PROMETHAZINE HYDROCHLORIDE
Active Ingredient: PROMETHAZINE HYDROCHLORIDE
Strength: 50MG/ML
Dosage Form/Route: INJECTABLE;INJECTION
Application: A089477 | Product #001
Applicant: MARSAM PHARMACEUTICALS LLC
Approved: May 2, 1988 | RLD: No | RS: No | Type: DISCN